FAERS Safety Report 4449162-0 (Version None)
Quarter: 2004Q3

REPORT INFORMATION
  Report Type: 
  Country: None (occurrence: None)
  Receive Date: 20040910
  Receipt Date: 20040826
  Transmission Date: 20050211
  Serious: Yes (Hospitalization)
  Sender: FDA-Public Use
  Company Number: 04P-151-0271612-00

PATIENT
  Age: 58 Year
  Sex: Male

DRUGS (7)
  1. DEPAKINE TABLETS (SODIUM VALPROATE) (SODIUM VALPROATE) (SODIUM VALPROA [Suspect]
     Indication: EPILEPSY
     Dosage: 300 MG, 1 IN 1 D, PER ORAL
     Route: 048
     Dates: end: 20030413
  2. MEROPENEM [Suspect]
     Indication: LUNG INFECTION
     Dosage: 3 GM, 1 IN 1 D, INTRAVENOUS
     Route: 042
     Dates: start: 20040413, end: 20040419
  3. CLARITHROMYCIN [Suspect]
     Indication: LUNG INFECTION
     Dosage: 1500 MG, 1 IN 1 D, PER ORAL
     Route: 048
     Dates: start: 20040413, end: 20040419
  4. PARACETAMOL [Suspect]
     Indication: PYREXIA
     Dosage: 4 GM, 1 IN 1 D, PER ORAL
     Route: 048
     Dates: start: 20040413, end: 20040422
  5. LEVETIRACETAM [Suspect]
     Indication: EPILEPSY
     Dosage: 1000 MG, 1 IN 1 D, PER ORAL
     Route: 048
     Dates: start: 20040413
  6. LEVOFLOXACIN [Concomitant]
  7. ACETAZOLAMIDE [Concomitant]

REACTIONS (8)
  - AGRANULOCYTOSIS [None]
  - BONE MARROW DEPRESSION [None]
  - LEGIONELLA SEROLOGY POSITIVE [None]
  - LUNG INFECTION [None]
  - PANCYTOPENIA [None]
  - RESPIRATORY ACIDOSIS [None]
  - RESPIRATORY FAILURE [None]
  - SEPSIS [None]
